FAERS Safety Report 14656984 (Version 1)
Quarter: 2018Q1

REPORT INFORMATION
  Report Type: Spontaneous
  Country: US (occurrence: US)
  Receive Date: 20180319
  Receipt Date: 20180319
  Transmission Date: 20180509
  Serious: No
  Sender: FDA-Public Use
  Company Number: US-SA-2017SA250710

PATIENT
  Age: 61 Year
  Sex: Male

DRUGS (2)
  1. NASACORT ALLERGY 24HR [Suspect]
     Active Substance: TRIAMCINOLONE ACETONIDE
     Route: 045
  2. CLARITIN [Concomitant]
     Active Substance: LORATADINE
     Indication: MITE ALLERGY

REACTIONS (1)
  - Expired product administered [Unknown]
